FAERS Safety Report 8771466 (Version 1)
Quarter: 2012Q4

REPORT INFORMATION
  Report Type: 
  Country: US (occurrence: US)
  Receive Date: 20120905
  Receipt Date: 20120905
  Transmission Date: 20130627
  Serious: Yes (Other)
  Sender: FDA-Public Use
  Company Number: US-VERTEX PHARMACEUTICAL INC.-2012-020448

PATIENT
  Age: 56 Year
  Sex: Female

DRUGS (3)
  1. VX-950 [Suspect]
     Indication: HEPATITIS C
     Dosage: UNK
     Route: 048
     Dates: start: 20120518, end: 20120814
  2. PEGASYS [Concomitant]
     Indication: HEPATITIS C
     Dosage: UNK
     Dates: start: 20120418, end: 20120814
  3. RIBAVIRIN [Concomitant]
     Indication: HEPATITIS C
     Dosage: UNK
     Dates: start: 20120418, end: 20120814

REACTIONS (2)
  - Convulsion [Unknown]
  - Rash [Unknown]
